FAERS Safety Report 5903919-5 (Version None)
Quarter: 2008Q3

REPORT INFORMATION
  Report Type: 
  Country: None (occurrence: None)
  Receive Date: 20080930
  Receipt Date: 20080924
  Transmission Date: 20090109
  Serious: Yes (Death)
  Sender: FDA-Public Use
  Company Number: US-GILEAD-2008-0018262

PATIENT
  Sex: Female
  Weight: 63.56 kg

DRUGS (26)
  1. LETAIRIS [Suspect]
     Indication: PULMONARY ARTERIAL HYPERTENSION
     Route: 048
     Dates: start: 20080627
  2. LISINOPRIL [Concomitant]
     Route: 048
  3. ALBUTEROL [Concomitant]
  4. ALBUTEROL [Concomitant]
  5. SPIRIVA [Concomitant]
  6. ADVAIR DISKUS 100/50 [Concomitant]
     Dosage: 500-50
  7. OXYGEN [Concomitant]
  8. CLONIDINE [Concomitant]
  9. NIFEDIPINE [Concomitant]
     Route: 048
  10. GABAPENTIN [Concomitant]
  11. KETAMINE HCL [Concomitant]
  12. KETOPROFEN [Concomitant]
  13. LECITHIN [Concomitant]
     Dosage: 2 ML
  14. LIDOCAINE [Concomitant]
  15. SODIUM CHLORIDE 0.9% [Concomitant]
  16. POLOXAMER GEL [Concomitant]
  17. CALTRATE + D [Concomitant]
     Route: 048
  18. ZOCOR [Concomitant]
     Route: 048
  19. TYLENOL (CAPLET) [Concomitant]
     Route: 048
  20. ASPIRIN [Concomitant]
     Route: 048
  21. OCEAN NASAL SPRAY [Concomitant]
  22. CARDI-OMEGA 3 [Concomitant]
  23. MULTI-VITAMIN [Concomitant]
  24. PREVACID [Concomitant]
     Route: 048
  25. AMITRIPTYLINE HCL [Concomitant]
     Route: 048
  26. VITAMIN B-12 [Concomitant]
     Route: 048

REACTIONS (2)
  - CHRONIC OBSTRUCTIVE PULMONARY DISEASE [None]
  - PULMONARY HYPERTENSION [None]
